FAERS Safety Report 16890773 (Version 2)
Quarter: 2019Q4

REPORT INFORMATION
  Report Type: Report from Study
  Country: US (occurrence: US)
  Receive Date: 20191007
  Receipt Date: 20191009
  Transmission Date: 20200122
  Serious: No
  Sender: FDA-Public Use
  Company Number: US-EMD SERONO-9107149

PATIENT
  Age: 62 Year
  Sex: Female

DRUGS (1)
  1. MAVENCLAD [Suspect]
     Active Substance: CLADRIBINE
     Indication: MULTIPLE SCLEROSIS
     Dosage: FIRST WEEK THERAPY: TWO TABLETS (10 MG EACH) ON DAY 1 AND 2 AND ONE TABLET ON DAYS 3 TO 5
     Route: 048
     Dates: start: 20190720, end: 20190724

REACTIONS (7)
  - Malaise [Unknown]
  - Paraesthesia [Not Recovered/Not Resolved]
  - Headache [Unknown]
  - Diarrhoea [Unknown]
  - Pruritus [Not Recovered/Not Resolved]
  - Fatigue [Unknown]
  - Abdominal pain [Unknown]

NARRATIVE: CASE EVENT DATE: 201907
